FAERS Safety Report 4393139-0 (Version None)
Quarter: 2004Q3

REPORT INFORMATION
  Report Type: 
  Country: None (occurrence: None)
  Receive Date: 20040702
  Receipt Date: 20040413
  Transmission Date: 20050211
  Serious: Yes (Other)
  Sender: FDA-Public Use
  Company Number: 2004UW07359

PATIENT
  Age: 65 Year
  Sex: Female
  Weight: 82.1011 kg

DRUGS (4)
  1. CRESTOR [Suspect]
     Indication: HYPERCHOLESTEROLAEMIA
     Dosage: 10 MG PO
     Route: 048
  2. PREVACID [Concomitant]
  3. ATENOLOL [Concomitant]
  4. MAXZIDE [Concomitant]

REACTIONS (3)
  - ABDOMINAL PAIN [None]
  - DIARRHOEA [None]
  - FEELING ABNORMAL [None]
